FAERS Safety Report 17841137 (Version 1)
Quarter: 2020Q2

REPORT INFORMATION
  Report Type: Spontaneous
  Country: GB (occurrence: GB)
  Receive Date: 20200529
  Receipt Date: 20200529
  Transmission Date: 20200714
  Serious: Yes (Life-Threatening)
  Sender: FDA-Public Use
  Company Number: GB-VERTEX PHARMACEUTICALS-2020-011569

PATIENT
  Age: 38 Year
  Sex: Male
  Weight: 74 kg

DRUGS (9)
  1. DORNASE ALFA. [Concomitant]
     Active Substance: DORNASE ALFA
  2. ALPHA-TOCOPHEROL [Concomitant]
     Active Substance: .ALPHA.-TOCOPHEROL
  3. PREDNISOLONE. [Concomitant]
     Active Substance: PREDNISOLONE
  4. FLUCLOXACILLIN [Concomitant]
     Active Substance: FLUCLOXACILLIN
  5. CREON [Concomitant]
     Active Substance: PANCRELIPASE AMYLASE\PANCRELIPASE LIPASE\PANCRELIPASE PROTEASE
  6. SYMKEVI [Suspect]
     Active Substance: IVACAFTOR\TEZACAFTOR
     Indication: CYSTIC FIBROSIS
     Dosage: AS PER SPC
     Route: 048
     Dates: start: 20190920
  7. KALYDECO [Suspect]
     Active Substance: IVACAFTOR
     Indication: CYSTIC FIBROSIS
     Dosage: AS PER SPC
     Route: 048
     Dates: start: 20190920
  8. ADCAL-D3 [Concomitant]
     Active Substance: CALCIUM CARBONATE\CHOLECALCIFEROL
  9. AZITHROMYCIN ANHYDROUS. [Concomitant]
     Active Substance: AZITHROMYCIN ANHYDROUS

REACTIONS (5)
  - Lymphoma [Unknown]
  - Vomiting [Unknown]
  - Abdominal pain [Unknown]
  - Hepatic cancer metastatic [Unknown]
  - Nausea [Unknown]

NARRATIVE: CASE EVENT DATE: 202004
